FAERS Safety Report 26020371 (Version 1)
Quarter: 2025Q4

REPORT INFORMATION
  Report Type: Spontaneous
  Country: PK (occurrence: None)
  Receive Date: 20251109
  Receipt Date: 20251109
  Transmission Date: 20260118
  Serious: Yes (unspecified)
  Sender: FDA-CTU
  Company Number: None

PATIENT
  Age: 20 Year
  Sex: Male
  Weight: 65 kg

DRUGS (1)
  1. ESCITALOPRAM [Suspect]
     Active Substance: ESCITALOPRAM OXALATE
     Indication: Depression

REACTIONS (5)
  - Erectile dysfunction [None]
  - Emotional disorder [None]
  - Disturbance in sexual arousal [None]
  - Loss of libido [None]
  - Depression [None]

NARRATIVE: CASE EVENT DATE: 20201106
